FAERS Safety Report 6731742-0 (Version None)
Quarter: 2010Q2

REPORT INFORMATION
  Report Type: 
  Country: None (occurrence: None)
  Receive Date: 20100519
  Receipt Date: 20100507
  Transmission Date: 20101027
  Serious: Yes (Hospitalization, Other)
  Sender: FDA-Public Use
  Company Number: US-PFIZER INC-2009313783

PATIENT
  Sex: Female

DRUGS (1)
  1. SUTENT [Suspect]
     Indication: METASTATIC RENAL CELL CARCINOMA
     Dosage: 50 MG (2 CAPSULES OF 25 MG) ALTERNATING WITH 25 MG (1 CAPSULE)
     Route: 048
     Dates: start: 20090905, end: 20100401

REACTIONS (4)
  - BLOOD PRESSURE INCREASED [None]
  - PRURITUS [None]
  - PYREXIA [None]
  - TOOTH ABSCESS [None]
